FAERS Safety Report 18066087 (Version 1)
Quarter: 2020Q3

REPORT INFORMATION
  Report Type: Spontaneous
  Country: DE (occurrence: DE)
  Receive Date: 20200724
  Receipt Date: 20200724
  Transmission Date: 20201103
  Serious: Yes (Other)
  Sender: FDA-Public Use
  Company Number: DE-JNJFOC-20200717542

PATIENT
  Age: 65 Year
  Sex: Male
  Weight: 107 kg

DRUGS (2)
  1. RAMILICH [Concomitant]
     Active Substance: RAMIPRIL
     Dosage: 2 DF, QD
     Dates: start: 20050713
  2. XARELTO [Suspect]
     Active Substance: RIVAROXABAN
     Indication: PRODUCT USED FOR UNKNOWN INDICATION
     Dosage: 20 MG, QD
     Route: 048
     Dates: start: 20200504

REACTIONS (3)
  - Haemoglobin decreased [Unknown]
  - Circulatory collapse [Unknown]
  - Dizziness [Unknown]

NARRATIVE: CASE EVENT DATE: 20200529
